FAERS Safety Report 8054684 (Version 1)
Quarter: 2020Q3

REPORT INFORMATION
  Report Type: Report from Study
  Country: US (occurrence: US)
  Receive Date: 20110726
  Receipt Date: 20110726
  Transmission Date: 20201104
  Serious: Yes (Hospitalization)
  Sender: FDA-Public Use
  Company Number: US-ROCHE-785829

PATIENT
  Age: 23 Year
  Sex: Male
  Weight: 68.9 kg

DRUGS (4)
  1. PEGINTERFERON ALFA?2A. [Suspect]
     Active Substance: PEGINTERFERON ALFA-2A
     Dosage: LAST DOSE PRIOR TO SAE: 15 JUNE 2011
     Route: 058
     Dates: start: 20110323, end: 20110621
  2. DANOPREVIR. [Suspect]
     Active Substance: DANOPREVIR
     Dosage: LAST DOSE PRIOR TO SAE: 20 JUN 2011
     Route: 048
     Dates: start: 20110323, end: 20110620
  3. RITONAVIR. [Suspect]
     Active Substance: RITONAVIR
     Dosage: LAST DOSE PRIOR TO SAE: 20 JUN 2011
     Route: 048
     Dates: start: 20110323, end: 20110620
  4. RIBAVIRIN. [Suspect]
     Active Substance: RIBAVIRIN
     Dosage: LAST DOSE PRIOR TO SAE: 20 JUN 2011
     Route: 048
     Dates: start: 20110323, end: 20110620

REACTIONS (1)
  - Pancreatitis [Recovered/Resolved]

NARRATIVE: CASE EVENT DATE: 20110616
